FAERS Safety Report 9219852 (Version 3)
Quarter: 2013Q2

REPORT INFORMATION
  Report Type: Spontaneous
  Country: DE (occurrence: None)
  Receive Date: 20130405
  Receipt Date: 20130430
  Transmission Date: 20140414
  Serious: Yes (Death)
  Sender: FDA-Public Use
  Company Number: AUR-APL-2013-02751

PATIENT
  Age: 63 Year
  Sex: Female
  Weight: 60 kg

DRUGS (5)
  1. METFORMIN (METFORMIN) [Suspect]
     Indication: TYPE 2 DIABETES MELLITUS
     Dosage: (850 MG, 2 IN 1 D)
     Route: 048
  2. ASS 100 (ACETYLSALICYLIC ACID) [Concomitant]
  3. EFIENT (PRASUGREL HYDROCHLORIDE) [Concomitant]
  4. INSPRA (EPLERENONE) [Concomitant]
  5. CONCOR (BISOPROLOL FUMARATE) [Concomitant]

REACTIONS (4)
  - Lactic acidosis [None]
  - Renal failure acute [None]
  - Shock [None]
  - Multi-organ failure [None]
